FAERS Safety Report 14554811 (Version 1)
Quarter: 2018Q1

REPORT INFORMATION
  Report Type: Spontaneous
  Country: JP (occurrence: JP)
  Receive Date: 20180220
  Receipt Date: 20180220
  Transmission Date: 20180509
  Serious: Yes (Death)
  Sender: FDA-Public Use
  Company Number: JP-ABBVIE-18P-087-2260592-00

PATIENT
  Age: 76 Year
  Sex: Female

DRUGS (1)
  1. MAVIRET [Suspect]
     Active Substance: GLECAPREVIR\PIBRENTASVIR
     Indication: CHRONIC HEPATITIS C
     Dosage: 3 DOSAGE FORMS DAILY
     Route: 048
     Dates: start: 20171218

REACTIONS (2)
  - Cardiac tamponade [Fatal]
  - Aortic dissection [Fatal]

NARRATIVE: CASE EVENT DATE: 20180124
